FAERS Safety Report 12998190 (Version 1)
Quarter: 2016Q4

REPORT INFORMATION
  Report Type: Spontaneous
  Country: US (occurrence: US)
  Receive Date: 20161202
  Receipt Date: 20161202
  Transmission Date: 20170207
  Serious: Yes (Disabling)
  Sender: FDA-Public Use
  Company Number: None

PATIENT
  Age: 62 Year
  Sex: Female
  Weight: 90 kg

DRUGS (12)
  1. PERIOSTAT [Concomitant]
     Active Substance: DOXYCYCLINE HYCLATE
  2. AMOXICILLIN. [Concomitant]
     Active Substance: AMOXICILLIN
  3. FLAX SEED [Concomitant]
     Active Substance: FLAX SEED
  4. ASPRIN [Concomitant]
     Active Substance: ASPIRIN
  5. B6 CALCIUM [Concomitant]
  6. PLAVIX [Concomitant]
     Active Substance: CLOPIDOGREL BISULFATE
  7. LANTUS SOLOSTAR [Concomitant]
     Active Substance: INSULIN GLARGINE
  8. MOTRIN [Concomitant]
     Active Substance: IBUPROFEN
  9. FISH OIL [Concomitant]
     Active Substance: FISH OIL
  10. EXEMESTANE. [Suspect]
     Active Substance: EXEMESTANE
     Indication: BREAST CANCER
     Dosage: ?          QUANTITY:1 TABLET(S);?
     Route: 048
     Dates: start: 20160314, end: 20161114
  11. PANTOPRAZOLE [Concomitant]
     Active Substance: PANTOPRAZOLE SODIUM
  12. VITAMIN B12 [Concomitant]
     Active Substance: CYANOCOBALAMIN

REACTIONS (1)
  - Blood glucose increased [None]

NARRATIVE: CASE EVENT DATE: 20161108
